FAERS Safety Report 9103521 (Version 2)
Quarter: 2013Q2

REPORT INFORMATION
  Report Type: Spontaneous
  Country: US (occurrence: US)
  Receive Date: 20130219
  Receipt Date: 20130606
  Transmission Date: 20140414
  Serious: No
  Sender: FDA-Public Use
  Company Number: PR-PFIZER INC-2013061215

PATIENT
  Age: 47 Year
  Sex: Male

DRUGS (4)
  1. LYRICA [Suspect]
     Indication: DIABETIC NEUROPATHY
     Dosage: UNK
  2. NEURONTIN [Suspect]
     Indication: NEURALGIA
     Dosage: 300 MG, 2X/DAY
     Route: 048
  3. NEURONTIN [Suspect]
     Indication: BACK PAIN
  4. NEURONTIN [Suspect]
     Indication: RADICULOPATHY

REACTIONS (1)
  - Oedema [Unknown]
